FAERS Safety Report 16798657 (Version 4)
Quarter: 2020Q4

REPORT INFORMATION
  Report Type: Spontaneous
  Country: US (occurrence: US)
  Receive Date: 20190912
  Receipt Date: 20201103
  Transmission Date: 20210113
  Serious: Yes (Hospitalization, Other)
  Sender: FDA-Public Use
  Company Number: US-SA-2019SA252773

PATIENT

DRUGS (50)
  1. EPINEPHRINE. [Concomitant]
     Active Substance: EPINEPHRINE
  2. ANDROGEL [Concomitant]
     Active Substance: TESTOSTERONE
     Dosage: UNK (20.25/1.25 GEL MD PMP)
  3. ZYRTEC-D [Concomitant]
     Active Substance: CETIRIZINE HYDROCHLORIDE\PSEUDOEPHEDRINE HYDROCHLORIDE
     Dosage: UNK, BID (SR, BID)
  4. UROCIT-K [Concomitant]
     Active Substance: POTASSIUM CITRATE
  5. SINGULAIR [Concomitant]
     Active Substance: MONTELUKAST SODIUM
  6. ROBAXIN-750 [Concomitant]
     Active Substance: METHOCARBAMOL
  7. PROVENTIL HFA [SALBUTAMOL] [Concomitant]
  8. CIALIS [Concomitant]
     Active Substance: TADALAFIL
  9. CHLORTHALIDONE. [Concomitant]
     Active Substance: CHLORTHALIDONE
  10. PANTOPRAZOLE SODIUM. [Concomitant]
     Active Substance: PANTOPRAZOLE SODIUM
  11. MAGNESIUM [Concomitant]
     Active Substance: MAGNESIUM
  12. SOLU-MEDROL [Concomitant]
     Active Substance: METHYLPREDNISOLONE SODIUM SUCCINATE
  13. VITAMIN C [Concomitant]
     Active Substance: ASCORBIC ACID
  14. INCRUSE ELLIPTA [Concomitant]
     Active Substance: UMECLIDINIUM BROMIDE
  15. LIDOCAIN [LIDOCAINE] [Concomitant]
     Active Substance: LIDOCAINE
  16. DUPIXENT [Suspect]
     Active Substance: DUPILUMAB
     Indication: HYPOGAMMAGLOBULINAEMIA
     Dosage: 300 MG, QOW
     Route: 058
  17. ACETAMINOPHEN. [Concomitant]
     Active Substance: ACETAMINOPHEN
  18. SPIRIVA RESPIMAT [Concomitant]
     Active Substance: TIOTROPIUM BROMIDE
     Route: 055
  19. LISINOPRIL [LISINOPRIL DIHYDRATE] [Concomitant]
  20. ACETAMINOPHEN;DIPHENHYDRAMINE HYDROCHLORIDE [Concomitant]
     Active Substance: ACETAMINOPHEN\DIPHENHYDRAMINE HYDROCHLORIDE
  21. HYDROCODONE/ACETAMINOPHEN [Concomitant]
     Active Substance: ACETAMINOPHEN\HYDROCODONE
  22. VERAPAMIL [Concomitant]
     Active Substance: VERAPAMIL HYDROCHLORIDE
  23. DIPHENHYDRAMINE. [Concomitant]
     Active Substance: DIPHENHYDRAMINE
  24. ZETIA [Concomitant]
     Active Substance: EZETIMIBE
  25. LIDOCAINE. [Concomitant]
     Active Substance: LIDOCAINE
  26. STERILE WATER [Concomitant]
     Active Substance: WATER
     Dosage: UNK
  27. LASIX [Concomitant]
     Active Substance: FUROSEMIDE
  28. BROVANA [Concomitant]
     Active Substance: ARFORMOTEROL TARTRATE
  29. SPIRONOLACTONE. [Concomitant]
     Active Substance: SPIRONOLACTONE
  30. PROBIOTIC [BIFIDOBACTERIUM LACTIS] [Concomitant]
     Active Substance: BIFIDOBACTERIUM ANIMALIS LACTIS
     Dosage: UNK (100B CELL CAPSULE)
  31. BREO ELLIPTA [Concomitant]
     Active Substance: FLUTICASONE FUROATE\VILANTEROL TRIFENATATE
     Dosage: UNK (200-25 MCG BLST W/DEV)
  32. CEFUROXIME. [Concomitant]
     Active Substance: CEFUROXIME
  33. XYZAL [Concomitant]
     Active Substance: LEVOCETIRIZINE DIHYDROCHLORIDE
  34. SPIRIVA [Concomitant]
     Active Substance: TIOTROPIUM BROMIDE MONOHYDRATE
  35. SENIOR [Concomitant]
     Dosage: UNK  (4-300-250 TABLET)
  36. DUPIXENT [Suspect]
     Active Substance: DUPILUMAB
     Indication: ASTHMA
  37. TAMSULOSIN HCL [Concomitant]
     Active Substance: TAMSULOSIN HYDROCHLORIDE
  38. SODIUM CHLORIDE 0.9% [Concomitant]
     Active Substance: SODIUM CHLORIDE
  39. MOBIC [Concomitant]
     Active Substance: MELOXICAM
  40. LEVALBUTEROL [LEVOSALBUTAMOL] [Concomitant]
     Active Substance: LEVALBUTEROL
  41. CORLANOR [Concomitant]
     Active Substance: IVABRADINE HYDROCHLORIDE
  42. DIGOXIN [BETA-ACETYLDIGOXIN] [Concomitant]
  43. SOLU-MEDROL [Concomitant]
     Active Substance: METHYLPREDNISOLONE SODIUM SUCCINATE
  44. XOLAIR [Concomitant]
     Active Substance: OMALIZUMAB
  45. XOPENEX [Concomitant]
     Active Substance: LEVALBUTEROL HYDROCHLORIDE
  46. LANSOPRAZOLE. [Concomitant]
     Active Substance: LANSOPRAZOLE
  47. TESTOSTERONE. [Concomitant]
     Active Substance: TESTOSTERONE
  48. PRIVIGEN [Concomitant]
     Active Substance: HUMAN IMMUNOGLOBULIN G
  49. DIPHENHYDRAMINE HYDROCHLORIDE. [Concomitant]
     Active Substance: DIPHENHYDRAMINE HYDROCHLORIDE
  50. DIGOXIN. [Concomitant]
     Active Substance: DIGOXIN

REACTIONS (9)
  - COVID-19 [Recovered/Resolved]
  - Myocardial infarction [Unknown]
  - Pneumonia [Unknown]
  - Infusion related reaction [Unknown]
  - Cardiac disorder [Unknown]
  - Product use in unapproved indication [Unknown]
  - Tachycardia [Unknown]
  - SARS-CoV-2 test positive [Recovered/Resolved]
  - Implantable defibrillator insertion [Unknown]

NARRATIVE: CASE EVENT DATE: 20201015
